FAERS Safety Report 20474557 (Version 1)
Quarter: 2022Q1

REPORT INFORMATION
  Report Type: Spontaneous
  Country: US (occurrence: US)
  Receive Date: 20220215
  Receipt Date: 20220215
  Transmission Date: 20220424
  Serious: Yes (Death)
  Sender: FDA-Public Use
  Company Number: US-PERRIGO-22US002255

PATIENT
  Age: 55 Year
  Sex: Female

DRUGS (6)
  1. MORPHINE SULFATE [Suspect]
     Active Substance: MORPHINE SULFATE
     Indication: Suspected suicide
     Dosage: UNKNOWN, UNKNOWN
     Route: 048
  2. LITHIUM [Suspect]
     Active Substance: LITHIUM
     Indication: Suspected suicide
     Dosage: UNKNOWN, UNKNOWN
     Route: 048
  3. OXYCODONE [Suspect]
     Active Substance: OXYCODONE
     Indication: Suspected suicide
     Dosage: UNK
     Route: 048
  4. OXYMORPHONE [Suspect]
     Active Substance: OXYMORPHONE
     Indication: Suspected suicide
     Dosage: UNK
     Route: 048
  5. QUETIAPINE [Suspect]
     Active Substance: QUETIAPINE
     Indication: Suspected suicide
     Dosage: UNK
     Route: 048
  6. CYCLOBENZAPRINE [Suspect]
     Active Substance: CYCLOBENZAPRINE
     Indication: Suspected suicide
     Dosage: UNK
     Route: 048

REACTIONS (1)
  - Exposure to toxic agent [Fatal]

NARRATIVE: CASE EVENT DATE: 20200101
